FAERS Safety Report 7349493-0 (Version None)
Quarter: 2011Q1

REPORT INFORMATION
  Report Type: 
  Country: None (occurrence: None)
  Receive Date: 20110303
  Receipt Date: 20110223
  Transmission Date: 20110831
  Serious: Yes (Other)
  Sender: FDA-Public Use
  Company Number: 2011SP008641

PATIENT
  Sex: Male

DRUGS (1)
  1. POSACONAZOLE [Suspect]
     Indication: ANTIFUNGAL PROPHYLAXIS
     Dosage: 200 MG;TID;PO
     Route: 048

REACTIONS (1)
  - LUNG NEOPLASM [None]
